FAERS Safety Report 9840728 (Version 4)
Quarter: 2014Q1

REPORT INFORMATION
  Report Type: Report from Study
  Country: ES (occurrence: ES)
  Receive Date: 20140124
  Receipt Date: 20140321
  Transmission Date: 20141002
  Serious: Yes (Hospitalization)
  Sender: FDA-Public Use
  Company Number: ES-ROCHE-1338868

PATIENT
  Age: 84 Year
  Sex: Female

DRUGS (11)
  1. BLINDED RANIBIZUMAB [Suspect]
     Indication: RETINAL VEIN OCCLUSION
     Route: 050
     Dates: start: 20130117
  2. BLINDED RANIBIZUMAB [Suspect]
     Route: 050
     Dates: start: 20130313
  3. BLINDED RANIBIZUMAB [Suspect]
     Route: 050
     Dates: start: 20130418
  4. BLINDED RANIBIZUMAB [Suspect]
     Route: 050
     Dates: start: 20130508
  5. BLINDED RANIBIZUMAB [Suspect]
     Route: 050
     Dates: start: 20130605
  6. BLINDED RANIBIZUMAB [Suspect]
     Route: 050
     Dates: start: 20130709
  7. BLINDED RANIBIZUMAB [Suspect]
     Route: 050
     Dates: start: 20130801
  8. BLINDED RANIBIZUMAB [Suspect]
     Route: 050
     Dates: start: 20131003
  9. ADIRO [Concomitant]
     Route: 065
     Dates: start: 20131228
  10. SIMVASTATIN [Concomitant]
     Route: 065
     Dates: start: 2003, end: 20131222
  11. ENALAPRIL [Concomitant]
     Route: 065
     Dates: start: 2003, end: 20131222

REACTIONS (8)
  - Myocardial infarction [Recovered/Resolved with Sequelae]
  - Atrioventricular block complete [Unknown]
  - Cardiac failure congestive [Unknown]
  - Hypotension [Recovering/Resolving]
  - Renal failure acute [Recovered/Resolved]
  - Coronary artery occlusion [Unknown]
  - Electrocardiogram abnormal [Unknown]
  - Atrial fibrillation [Unknown]
